FAERS Safety Report 9002105 (Version 3)
Quarter: 2013Q1

REPORT INFORMATION
  Report Type: Report from Study
  Country: CA (occurrence: CA)
  Receive Date: 20130107
  Receipt Date: 20130208
  Transmission Date: 20140127
  Serious: Yes (Hospitalization)
  Sender: FDA-Public Use
  Company Number: CA-ABBOTT-13P-028-1031416-00

PATIENT
  Sex: Male

DRUGS (1)
  1. HUMIRA [Suspect]
     Indication: CEREBRAL SARCOIDOSIS
     Route: 058
     Dates: start: 20121004

REACTIONS (2)
  - Convulsion [Unknown]
  - Depressed level of consciousness [Recovered/Resolved]
